FAERS Safety Report 13132259 (Version 3)
Quarter: 2017Q1

REPORT INFORMATION
  Report Type: Spontaneous
  Country: CA (occurrence: CA)
  Receive Date: 20170120
  Receipt Date: 20170228
  Transmission Date: 20170428
  Serious: Yes (Other)
  Sender: FDA-Public Use
  Company Number: CA-ROCHE-1881535

PATIENT
  Age: 65 Year
  Sex: Female
  Weight: 54.5 kg

DRUGS (16)
  1. CIPRALEX [Concomitant]
     Active Substance: ESCITALOPRAM OXALATE
  2. ORACORT [Concomitant]
     Active Substance: TRIAMCINOLONE ACETONIDE
  3. XYLOCAINE [Concomitant]
     Active Substance: LIDOCAINE HYDROCHLORIDE
  4. PREDNISONE. [Suspect]
     Active Substance: PREDNISONE
     Indication: PEMPHIGUS
     Route: 065
     Dates: start: 20161019
  5. PREDNISONE. [Suspect]
     Active Substance: PREDNISONE
     Route: 065
     Dates: start: 20161214
  6. CLOBETASOL [Concomitant]
     Active Substance: CLOBETASOL
  7. ALEVE [Concomitant]
     Active Substance: NAPROXEN SODIUM
  8. CELLCEPT [Suspect]
     Active Substance: MYCOPHENOLATE MOFETIL\MYCOPHENOLATE MOFETIL HYDROCHLORIDE
     Indication: PEMPHIGUS
     Dosage: THREE TABLETS (1.5GM) THRICE DAILY
     Route: 048
     Dates: start: 20161117
  9. CELLCEPT [Suspect]
     Active Substance: MYCOPHENOLATE MOFETIL\MYCOPHENOLATE MOFETIL HYDROCHLORIDE
     Route: 048
     Dates: start: 20170123
  10. PREDNISONE. [Suspect]
     Active Substance: PREDNISONE
     Route: 065
     Dates: start: 20161117
  11. CELLCEPT [Suspect]
     Active Substance: MYCOPHENOLATE MOFETIL\MYCOPHENOLATE MOFETIL HYDROCHLORIDE
     Route: 048
     Dates: start: 20161214
  12. ACTONEL [Concomitant]
     Active Substance: RISEDRONATE SODIUM
  13. PREDNISONE. [Suspect]
     Active Substance: PREDNISONE
     Route: 065
     Dates: start: 20170123
  14. ALLEGRA [Concomitant]
     Active Substance: FEXOFENADINE HYDROCHLORIDE
  15. VAGIFEM [Concomitant]
     Active Substance: ESTRADIOL
  16. BETADERM (CANADA) [Concomitant]

REACTIONS (4)
  - Drug ineffective [Unknown]
  - Choking sensation [Unknown]
  - Pemphigus [Not Recovered/Not Resolved]
  - Dysphagia [Unknown]

NARRATIVE: CASE EVENT DATE: 20170117
